FAERS Safety Report 9640243 (Version 2)
Quarter: 2013Q4

REPORT INFORMATION
  Report Type: Spontaneous
  Country: US (occurrence: US)
  Receive Date: 20131023
  Receipt Date: 20131126
  Transmission Date: 20140711
  Serious: No
  Sender: FDA-Public Use
  Company Number: US-PFIZER INC-2013300041

PATIENT
  Age: 58 Year
  Sex: Male

DRUGS (3)
  1. SUTENT [Suspect]
     Indication: SARCOMA
     Dosage: 12.5 MG, 1X/DAY
     Route: 048
  2. SUTENT [Suspect]
     Dosage: 25 MG, 1X/DAY
     Route: 048
  3. WARFARIN [Concomitant]
     Dosage: UNK

REACTIONS (8)
  - Abdominal distension [Unknown]
  - Hypoglycaemia [Unknown]
  - Rash [Unknown]
  - Hyperkeratosis [Unknown]
  - Skin lesion [Unknown]
  - Fatigue [Unknown]
  - Dyspnoea [Unknown]
  - Off label use [Unknown]
